FAERS Safety Report 9305090 (Version 1)
Quarter: 2013Q2

REPORT INFORMATION
  Report Type: Spontaneous
  Country: US (occurrence: None)
  Receive Date: 20130522
  Receipt Date: 20130522
  Transmission Date: 20140414
  Serious: Yes (Other)
  Sender: FDA-Public Use
  Company Number: None

PATIENT
  Age: 60 Year
  Sex: Female

DRUGS (2)
  1. TEMODAR [Suspect]
     Dosage: 2 CAPS DAILY X 5 DAYS
     Route: 048
     Dates: start: 20130420
  2. TEMODAR [Suspect]
     Dosage: 2 CAPS DAILY X5 DAYS
     Route: 048
     Dates: start: 20130420

REACTIONS (4)
  - Muscle rigidity [None]
  - Nausea [None]
  - Vomiting [None]
  - Diarrhoea [None]
